FAERS Safety Report 18616701 (Version 2)
Quarter: 2020Q4

REPORT INFORMATION
  Report Type: Spontaneous
  Country: DE (occurrence: DE)
  Receive Date: 20201215
  Receipt Date: 20201221
  Transmission Date: 20210114
  Serious: Yes (Life-Threatening, Other)
  Sender: FDA-Public Use
  Company Number: DE-SA-2020SA357782

PATIENT

DRUGS (3)
  1. LEMTRADA [Suspect]
     Active Substance: ALEMTUZUMAB
     Indication: MULTIPLE SCLEROSIS
     Dosage: 15 MG, 3X
     Route: 042
     Dates: start: 2016, end: 20161205
  2. LEMTRADA [Suspect]
     Active Substance: ALEMTUZUMAB
     Dosage: 5 X15 MG
     Route: 042
     Dates: start: 20150505, end: 2015
  3. RAMIPRIL. [Concomitant]
     Active Substance: RAMIPRIL
     Indication: HYPERTENSION
     Dosage: 2.5 MG
     Route: 048

REACTIONS (3)
  - Incorrect dose administered [Unknown]
  - Thrombocytopenia [Recovered/Resolved with Sequelae]
  - Pancytopenia [Unknown]

NARRATIVE: CASE EVENT DATE: 201705
